FAERS Safety Report 10372854 (Version 2)
Quarter: 2014Q3

REPORT INFORMATION
  Report Type: Spontaneous
  Country: US (occurrence: US)
  Receive Date: 20140808
  Receipt Date: 20140808
  Transmission Date: 20150326
  Serious: No
  Sender: FDA-Public Use
  Company Number: US-BRISTOL-MYERS SQUIBB COMPANY-19703867

PATIENT
  Age: 76 Year
  Sex: Male
  Weight: 99.77 kg

DRUGS (14)
  1. VITAMIN C [Concomitant]
     Active Substance: ASCORBIC ACID
     Dosage: CAPS
  2. FUROSEMIDE. [Concomitant]
     Active Substance: FUROSEMIDE
     Dosage: TAB
  3. ATORVASTATIN [Concomitant]
     Active Substance: ATORVASTATIN
     Dosage: TABS
  4. SPRYCEL [Suspect]
     Active Substance: DASATINIB
     Dosage: TABS
     Route: 048
     Dates: start: 20131024
  5. FLOVENT [Concomitant]
     Active Substance: FLUTICASONE PROPIONATE
     Dosage: AER
  6. ATENOLOL TABS [Concomitant]
  7. ASPIRIN. [Concomitant]
     Active Substance: ASPIRIN
     Dosage: ADLT TAB
  8. LANTUS [Concomitant]
     Active Substance: INSULIN GLARGINE
     Dosage: INJ 100/ML
  9. HYDROMORPHONE [Concomitant]
     Active Substance: HYDROMORPHONE
     Dosage: TABS
  10. TRAMADOL HCL [Concomitant]
     Active Substance: TRAMADOL HYDROCHLORIDE
     Dosage: TABS
  11. SPIRIVA [Concomitant]
     Active Substance: TIOTROPIUM BROMIDE MONOHYDRATE
     Dosage: CAP  HANDIHLR
  12. MAGNESIUM [Concomitant]
     Active Substance: MAGNESIUM
     Dosage: CAPS
  13. ATIVAN [Concomitant]
     Active Substance: LORAZEPAM
     Dosage: TABS
  14. METFORMIN [Concomitant]
     Active Substance: METFORMIN HYDROCHLORIDE
     Dosage: TABS

REACTIONS (1)
  - Diarrhoea [Recovered/Resolved]

NARRATIVE: CASE EVENT DATE: 20131024
